FAERS Safety Report 11508440 (Version 1)
Quarter: 2015Q3

REPORT INFORMATION
  Report Type: Spontaneous
  Country: US (occurrence: US)
  Receive Date: 20150903
  Receipt Date: 20150903
  Transmission Date: 20151125
  Serious: No
  Sender: FDA-Public Use
  Company Number: US-ELI_LILLY_AND_COMPANY-US200910000708

PATIENT
  Sex: Female

DRUGS (6)
  1. HUMALOG [Suspect]
     Active Substance: INSULIN LISPRO
     Dosage: 6 U, OTHER
  2. HUMALOG [Suspect]
     Active Substance: INSULIN LISPRO
     Dosage: 7 U, EACH MORNING
  3. HUMALOG [Suspect]
     Active Substance: INSULIN LISPRO
     Dosage: 7 U, OTHER
  4. HUMALOG [Suspect]
     Active Substance: INSULIN LISPRO
     Dosage: 7 U, EACH EVENING
  5. HUMALOG [Suspect]
     Active Substance: INSULIN LISPRO
     Dosage: 6 U, EACH EVENING
  6. HUMALOG [Suspect]
     Active Substance: INSULIN LISPRO
     Dosage: 6 U, EACH EVENING

REACTIONS (7)
  - Drug hypersensitivity [Not Recovered/Not Resolved]
  - Drug ineffective [Recovered/Resolved]
  - Abdominal pain upper [Not Recovered/Not Resolved]
  - Anxiety [Unknown]
  - Malaise [Unknown]
  - Blood glucose increased [Not Recovered/Not Resolved]
  - Migraine [Not Recovered/Not Resolved]

NARRATIVE: CASE EVENT DATE: 2002
